FAERS Safety Report 24286983 (Version 1)
Quarter: 2024Q3

REPORT INFORMATION
  Report Type: Spontaneous
  Country: DE (occurrence: None)
  Receive Date: 20240905
  Receipt Date: 20240905
  Transmission Date: 20241017
  Serious: Yes (Life-Threatening, Hospitalization)
  Sender: ASTRAZENECA
  Company Number: 2024A200602

PATIENT
  Age: 83 Year
  Sex: Female

DRUGS (1)
  1. DAPAGLIFLOZIN [Suspect]
     Active Substance: DAPAGLIFLOZIN
     Indication: Cardiac failure
     Dosage: 10.0MG UNKNOWN
     Route: 048

REACTIONS (1)
  - Pemphigoid [Recovered/Resolved]
